FAERS Safety Report 7368554-3 (Version None)
Quarter: 2011Q1

REPORT INFORMATION
  Report Type: 
  Country: None (occurrence: None)
  Receive Date: 20110323
  Receipt Date: 20110224
  Transmission Date: 20110831
  Serious: Yes (Life-Threatening)
  Sender: FDA-Public Use
  Company Number: US-KINGPHARMUSA00001-K201100305

PATIENT
  Sex: Female
  Weight: 55.329 kg

DRUGS (8)
  1. LEVOXYL [Suspect]
     Indication: THYROID DISORDER
     Dosage: UNK
  2. METOPROLOL [Suspect]
     Dosage: UNK
  3. METFORMIN [Suspect]
     Indication: BLOOD GLUCOSE ABNORMAL
  4. AMITRIPTYLINE [Suspect]
     Dosage: UNK
  5. LIPITOR [Suspect]
     Indication: BLOOD CHOLESTEROL ABNORMAL
     Dosage: UNK
  6. ASPIRIN [Suspect]
     Dosage: UNK
  7. ZANTAC [Suspect]
     Dosage: UNK
  8. ACCUPRIL [Suspect]
     Indication: BLOOD PRESSURE ABNORMAL
     Dosage: UNK

REACTIONS (2)
  - CHEST PAIN [None]
  - CORONARY ARTERY OCCLUSION [None]
